FAERS Safety Report 16150137 (Version 1)
Quarter: 2019Q2

REPORT INFORMATION
  Report Type: Other
  Country: DE (occurrence: DE)
  Receive Date: 20190403
  Receipt Date: 20190403
  Transmission Date: 20190711
  Serious: Yes (Hospitalization)
  Sender: FDA-Public Use
  Company Number: DE-EYWA PHARMA INC.-2065193

PATIENT

DRUGS (1)
  1. BACLOFEN. [Suspect]
     Active Substance: BACLOFEN
     Indication: FUNGAL INFECTION
     Route: 048

REACTIONS (7)
  - Gait disturbance [Unknown]
  - Depressed level of consciousness [Unknown]
  - Hypotonia [Unknown]
  - Product prescribing issue [None]
  - Overdose [Unknown]
  - Accidental overdose [None]
  - Wrong product administered [Unknown]
